FAERS Safety Report 12296162 (Version 2)
Quarter: 2016Q2

REPORT INFORMATION
  Report Type: Report from Study
  Country: GB (occurrence: GB)
  Receive Date: 20160422
  Receipt Date: 20160510
  Transmission Date: 20160815
  Serious: Yes (Other)
  Sender: FDA-Public Use
  Company Number: GB-JNJFOC-20160418607

PATIENT
  Sex: Female

DRUGS (1)
  1. STELARA [Suspect]
     Active Substance: USTEKINUMAB
     Indication: PSORIATIC ARTHROPATHY
     Route: 058
     Dates: start: 20160307

REACTIONS (4)
  - Nasopharyngitis [Unknown]
  - Psoriatic arthropathy [Unknown]
  - Gastroenteritis norovirus [Unknown]
  - Conjunctivitis [Unknown]
